FAERS Safety Report 21962223 (Version 1)
Quarter: 2023Q1

REPORT INFORMATION
  Report Type: Spontaneous
  Country: US (occurrence: None)
  Receive Date: 20230206
  Receipt Date: 20230206
  Transmission Date: 20230417
  Serious: Yes (Hospitalization)
  Sender: FDA-Public Use
  Company Number: None

PATIENT
  Sex: Male

DRUGS (19)
  1. TACROLIMUS [Suspect]
     Active Substance: TACROLIMUS
     Indication: Renal transplant
     Route: 048
     Dates: start: 20200618
  2. ACYCLOVIR TAB [Concomitant]
  3. ATORVASTATIN [Concomitant]
     Active Substance: ATORVASTATIN
  4. CALCITRIOL CAP [Concomitant]
  5. FLOMAX CAP [Concomitant]
  6. FLONASE SPR [Concomitant]
  7. HUMALOG KWIK INJ [Concomitant]
  8. IMIPRAM PAM CAP [Concomitant]
  9. LANTUS SOLOS INJ [Concomitant]
  10. LOSARTAN POT TAB [Concomitant]
  11. MAG OXIDE TAB [Concomitant]
  12. METOPROL SUC TAB [Concomitant]
  13. MYCOPHENOLAT TAB [Concomitant]
  14. MYCOPHENOLATE [Concomitant]
  15. NIFEDIPINE TAB [Concomitant]
  16. OMEPRAZOLE TAB [Concomitant]
  17. PREDNISONE [Concomitant]
     Active Substance: PREDNISONE
  18. TAMSULOSIN [Concomitant]
     Active Substance: TAMSULOSIN
  19. VITAMIN D CAP [Concomitant]

REACTIONS (3)
  - Infection [None]
  - Accident [None]
  - Limb injury [None]
